FAERS Safety Report 21473480 (Version 1)
Quarter: 2022Q4

REPORT INFORMATION
  Report Type: Spontaneous
  Country: IT (occurrence: IT)
  Receive Date: 20221018
  Receipt Date: 20221018
  Transmission Date: 20230113
  Serious: Yes (Hospitalization, Other)
  Sender: FDA-Public Use
  Company Number: IT-GLAXOSMITHKLINE-IT2022GSK121666

PATIENT
  Age: 54 Year
  Sex: Male

DRUGS (15)
  1. ALMOTRIPTAN [Suspect]
     Active Substance: ALMOTRIPTAN
     Indication: Migraine
     Dosage: 12.5 MILLIGRAM, QD (12.5 MG, 1D)
     Route: 065
  2. ERENUMAB [Suspect]
     Active Substance: ERENUMAB
     Indication: Migraine prophylaxis
     Dosage: 140 MILLIGRAM (140 MG, INCREASED)
     Route: 058
     Dates: start: 201903
  3. ERENUMAB [Suspect]
     Active Substance: ERENUMAB
     Dosage: 70 MILLIGRAM (70 MG)
     Route: 058
     Dates: start: 201903
  4. SUMATRIPTAN SUCCINATE [Suspect]
     Active Substance: SUMATRIPTAN SUCCINATE
     Indication: Migraine
     Dosage: 6 MILLIGRAM (6 MG)
     Route: 058
     Dates: start: 20190829
  5. SUMATRIPTAN SUCCINATE [Suspect]
     Active Substance: SUMATRIPTAN SUCCINATE
     Dosage: 6 MILLIGRAM, QD (6 MG, 1D)
     Route: 058
  6. AMITRIPTYLINE;CHLORDIAZEPOXIDE [Concomitant]
     Indication: Migraine prophylaxis
     Dosage: UNK
     Route: 065
  7. AMITRIPTYLINE;CHLORDIAZEPOXIDE [Concomitant]
     Dosage: UNK
     Route: 065
  8. ASPIRIN [Concomitant]
     Active Substance: ASPIRIN
     Indication: Product used for unknown indication
     Dosage: 100 MILLIGRAM, QD (100 MG, 1D)
     Route: 065
  9. CANDESARTAN [Concomitant]
     Active Substance: CANDESARTAN
     Indication: Product used for unknown indication
     Dosage: 16 MILLIGRAM, QD (16 MG, 1D)
     Route: 065
  10. CITALOPRAM [Concomitant]
     Active Substance: CITALOPRAM HYDROBROMIDE
     Indication: Migraine prophylaxis
     Dosage: 10 MILLIGRAM, QD (10 MG, 1D)
     Route: 065
  11. CITALOPRAM [Concomitant]
     Active Substance: CITALOPRAM HYDROBROMIDE
     Dosage: 10 MILLIGRAM, QD (10 MG, 1D)
     Route: 065
  12. OMEPRAZOLE [Concomitant]
     Active Substance: OMEPRAZOLE
     Indication: Product used for unknown indication
     Dosage: 20 MILLIGRAM, QD (20 MG, 1D)
     Route: 065
  13. ROSUVASTATIN [Concomitant]
     Active Substance: ROSUVASTATIN
     Indication: Product used for unknown indication
     Dosage: 20 MILLIGRAM, QD (20 MG, 1D)
     Route: 065
  14. PIZOTYLINE [Concomitant]
     Active Substance: PIZOTYLINE
     Indication: Migraine prophylaxis
     Dosage: 0.5 MILLIGRAM (0.5 MG)
     Route: 065
  15. PIZOTYLINE [Concomitant]
     Active Substance: PIZOTYLINE
     Dosage: 0.5 MILLIGRAM (0.5 MG)
     Route: 065

REACTIONS (9)
  - Atrial fibrillation [Unknown]
  - Coronary artery occlusion [Unknown]
  - Coronary artery thrombosis [Unknown]
  - Acute myocardial infarction [Unknown]
  - Arteriospasm coronary [Unknown]
  - Ventricular hypokinesia [Unknown]
  - Pain [Unknown]
  - Chest pain [Unknown]
  - Overdose [Unknown]
